FAERS Safety Report 8001371-X (Version None)
Quarter: 2011Q4

REPORT INFORMATION
  Report Type: 
  Country: None (occurrence: None)
  Receive Date: 20111222
  Receipt Date: 20111216
  Transmission Date: 20120403
  Serious: Yes (Other)
  Sender: FDA-Public Use
  Company Number: US-PFIZER INC-2011307683

PATIENT
  Sex: Male

DRUGS (1)
  1. CHANTIX [Suspect]
     Dosage: UNK
     Dates: start: 20070801

REACTIONS (12)
  - PERSONALITY DISORDER [None]
  - POST-TRAUMATIC STRESS DISORDER [None]
  - PANIC DISORDER WITH AGORAPHOBIA [None]
  - ANXIETY [None]
  - AMNESIA [None]
  - INSOMNIA [None]
  - PARANOIA [None]
  - SUICIDAL BEHAVIOUR [None]
  - MENTAL DISORDER [None]
  - PSYCHOTIC DISORDER [None]
  - DEPRESSION [None]
  - ANGER [None]
